FAERS Safety Report 8780626 (Version 2)
Quarter: 2012Q4

REPORT INFORMATION
  Report Type: 
  Country: US (occurrence: US)
  Receive Date: 20120913
  Receipt Date: 20120920
  Transmission Date: 20130627
  Serious: Yes (Other)
  Sender: FDA-Public Use
  Company Number: PHEH2012US017780

PATIENT
  Sex: Female

DRUGS (2)
  1. GILENYA [Suspect]
     Indication: MULTIPLE SCLEROSIS
     Dosage: 0.5 mg, QD
     Route: 048
  2. GILENYA [Suspect]
     Dosage: 0.5 mg, QD
     Route: 048

REACTIONS (4)
  - Atrioventricular block second degree [Unknown]
  - Dizziness [Unknown]
  - Arrhythmia [Unknown]
  - Atrioventricular block second degree [None]
